FAERS Safety Report 12681171 (Version 1)
Quarter: 2016Q3

REPORT INFORMATION
  Report Type: Spontaneous
  Country: BR (occurrence: BR)
  Receive Date: 20160824
  Receipt Date: 20160824
  Transmission Date: 20161109
  Serious: Yes (Other)
  Sender: FDA-Public Use
  Company Number: PHHY2016BR114827

PATIENT
  Sex: Female
  Weight: 90 kg

DRUGS (4)
  1. FLUOXETINE [Concomitant]
     Active Substance: FLUOXETINE HYDROCHLORIDE
     Indication: ANXIETY
  2. DIOVAN [Suspect]
     Active Substance: VALSARTAN
     Dosage: 1 DF (OF DIOVAN 320 MG), QD
     Route: 048
     Dates: start: 2006, end: 201604
  3. DIOVAN [Suspect]
     Active Substance: VALSARTAN
     Indication: HYPERTENSION
     Dosage: 1 DF (OF DIOVAN 160 MG), QD
     Route: 048
     Dates: start: 2006, end: 2006
  4. FLUOXETINE [Concomitant]
     Active Substance: FLUOXETINE HYDROCHLORIDE
     Indication: DEPRESSION
     Dosage: 2 DF, QD
     Route: 048
     Dates: start: 2016

REACTIONS (3)
  - Uterine haemorrhage [Recovered/Resolved]
  - Appendicitis [Recovered/Resolved]
  - Pterygium [Recovering/Resolving]

NARRATIVE: CASE EVENT DATE: 2009
